FAERS Safety Report 5292301-2 (Version None)
Quarter: 2007Q2

REPORT INFORMATION
  Report Type: 
  Country: None (occurrence: None)
  Receive Date: 20070410
  Receipt Date: 20070403
  Transmission Date: 20071010
  Serious: Yes (Hospitalization)
  Sender: FDA-Public Use
  Company Number: IT-GENENTECH-239337

PATIENT
  Age: 55 Year
  Sex: Male

DRUGS (1)
  1. RAPTIVA [Suspect]
     Indication: PARAPSORIASIS
     Dosage: 1000 MG, 1/WEEK
     Route: 058
     Dates: start: 20060101

REACTIONS (1)
  - PITYRIASIS ROSEA [None]
